FAERS Safety Report 22394636 (Version 1)
Quarter: 2023Q2

REPORT INFORMATION
  Report Type: Spontaneous
  Country: US (occurrence: None)
  Receive Date: 20230531
  Receipt Date: 20230531
  Transmission Date: 20230722
  Serious: No
  Sender: FDA-Public Use
  Company Number: None

PATIENT
  Sex: Male

DRUGS (1)
  1. MAVENCLAD [Suspect]
     Active Substance: CLADRIBINE
     Indication: Multiple sclerosis
     Dosage: 20MG ORAL?ONCE DAILY FOR 5 DAYS OF CYCLE 1.
     Route: 048
     Dates: start: 202304

REACTIONS (2)
  - Drug ineffective [None]
  - Gait disturbance [None]
